FAERS Safety Report 7712803-6 (Version None)
Quarter: 2011Q3

REPORT INFORMATION
  Report Type: 
  Country: None (occurrence: None)
  Receive Date: 20110826
  Receipt Date: 20110818
  Transmission Date: 20111222
  Serious: Yes (Other)
  Sender: FDA-Public Use
  Company Number: FR-GLAXOSMITHKLINE-B0740635A

PATIENT
  Age: 26 Year
  Sex: Female
  Weight: 60 kg

DRUGS (4)
  1. TALOXA [Suspect]
     Indication: EPILEPSY
     Dosage: 2400MG PER DAY
     Route: 048
     Dates: start: 20110725
  2. KEPPRA [Suspect]
     Indication: EPILEPSY
     Dosage: 1000MG PER DAY
     Route: 048
     Dates: start: 20110725
  3. LAMICTAL [Suspect]
     Indication: EPILEPSY
     Dosage: 400MG PER DAY
     Route: 048
     Dates: start: 20110725
  4. DEPAKENE [Suspect]
     Indication: EPILEPSY
     Dosage: 400MG PER DAY
     Route: 048
     Dates: start: 20110725

REACTIONS (5)
  - SPEECH DISORDER [None]
  - MALAISE [None]
  - DIZZINESS [None]
  - MEDICATION ERROR [None]
  - INAPPROPRIATE SCHEDULE OF DRUG ADMINISTRATION [None]
